FAERS Safety Report 4826497-0 (Version None)
Quarter: 2005Q4

REPORT INFORMATION
  Report Type: 
  Country: None (occurrence: None)
  Receive Date: 20051111
  Receipt Date: 20050803
  Transmission Date: 20060501
  Serious: Yes (Hospitalization)
  Sender: FDA-Public Use
  Company Number: US-MERCK-0508USA01260

PATIENT
  Age: 59 Year
  Sex: Male
  Weight: 90 kg

DRUGS (7)
  1. VIOXX [Suspect]
     Indication: ARTHRITIS
     Route: 048
     Dates: start: 19990101, end: 20041001
  2. ZOLOFT [Concomitant]
     Indication: PANIC ATTACK
     Route: 065
  3. ZOLOFT [Concomitant]
     Indication: ANXIETY DISORDER
     Route: 065
  4. ZOCOR [Concomitant]
     Route: 065
  5. FLONASE [Concomitant]
     Indication: HYPERSENSITIVITY
     Route: 065
  6. ALLEGRA [Concomitant]
     Route: 065
  7. ASPIRIN [Concomitant]
     Route: 065

REACTIONS (3)
  - CARDIAC DISORDER [None]
  - DIABETES MELLITUS NON-INSULIN-DEPENDENT [None]
  - MYOCARDIAL INFARCTION [None]
